FAERS Safety Report 18924467 (Version 2)
Quarter: 2021Q1

REPORT INFORMATION
  Report Type: Report from Study
  Country: BR (occurrence: BR)
  Receive Date: 20210222
  Receipt Date: 20210226
  Transmission Date: 20210420
  Serious: Yes (Life-Threatening, Hospitalization, Other)
  Sender: FDA-Public Use
  Company Number: NVSC2019BR024669

PATIENT
  Age: 25 Year
  Sex: Female
  Weight: 100 kg

DRUGS (7)
  1. NEORAL [Suspect]
     Active Substance: CYCLOSPORINE
     Indication: URTICARIA
  2. CELERG [Concomitant]
     Indication: URTICARIA
     Dosage: 8 DF, QD
     Route: 048
  3. CICLO [Concomitant]
     Indication: CONTRACEPTION
     Dosage: 1 DF, CICLO21, AFTER DISCOVERED PREGNANCY
     Route: 048
  4. XOLAIR [Suspect]
     Active Substance: OMALIZUMAB
     Indication: URTICARIA
     Dosage: 1 AMPOULE, QMO
     Route: 065
     Dates: start: 20190212
  5. XOLAIR [Suspect]
     Active Substance: OMALIZUMAB
     Indication: URTICARIA CHRONIC
     Dosage: 1 DF, QMO
     Route: 030
     Dates: start: 20190215
  6. CELERG [Concomitant]
     Dosage: 1 TABLET, 3 OR 4 TIMES A DAY, 3 MONTHS AGO STARTED
     Route: 048
  7. NEORAL [Suspect]
     Active Substance: CYCLOSPORINE
     Indication: URTICARIA
     Dosage: 1 DF, TID
     Route: 048
     Dates: start: 201912, end: 201912

REACTIONS (11)
  - Hypersensitivity [Not Recovered/Not Resolved]
  - Injection site discolouration [Not Recovered/Not Resolved]
  - Pain [Unknown]
  - Normal newborn [Unknown]
  - Weight increased [Not Recovered/Not Resolved]
  - Therapeutic product effect decreased [Unknown]
  - Maternal exposure during pregnancy [Recovered/Resolved]
  - Peripheral swelling [Not Recovered/Not Resolved]
  - Gait disturbance [Not Recovered/Not Resolved]
  - Swelling [Not Recovered/Not Resolved]
  - Urticaria [Not Recovered/Not Resolved]

NARRATIVE: CASE EVENT DATE: 201904
